FAERS Safety Report 16380504 (Version 1)
Quarter: 2019Q2

REPORT INFORMATION
  Report Type: Spontaneous
  Country: US (occurrence: US)
  Receive Date: 20190601
  Receipt Date: 20190601
  Transmission Date: 20190711
  Serious: No
  Sender: FDA-Public Use
  Company Number: US-AUROBINDO-AUR-APU-2018-036650

PATIENT
  Sex: Male
  Weight: 109.3 kg

DRUGS (3)
  1. PRAVASTATIN. [Concomitant]
     Active Substance: PRAVASTATIN
     Indication: HYPERTENSION
  2. HYDROCODONE BITARTRATE AND ACETAMINOPHEN TABLETS USP 10 MG/325 MG [Suspect]
     Active Substance: ACETAMINOPHEN\HYDROCODONE BITARTRATE
     Indication: ARTHRITIS
     Dosage: 10 MG/325 MG, 4 TIMES A DAY
     Route: 065
     Dates: start: 20180711, end: 20180713
  3. HYDROCODONE BITARTRATE AND ACETAMINOPHEN TABLETS USP 10 MG/325 MG [Suspect]
     Active Substance: ACETAMINOPHEN\HYDROCODONE BITARTRATE
     Indication: ARTHRALGIA

REACTIONS (1)
  - Drug ineffective [Unknown]
